FAERS Safety Report 21572326 (Version 7)
Quarter: 2023Q1

REPORT INFORMATION
  Report Type: Report from Study
  Country: US (occurrence: US)
  Receive Date: 20221109
  Receipt Date: 20230323
  Transmission Date: 20230417
  Serious: Yes (Hospitalization)
  Sender: FDA-Public Use
  Company Number: US-JNJFOC-20221106130

PATIENT
  Age: 7 Month
  Sex: Male
  Weight: 6.129 kg

DRUGS (5)
  1. BOSENTAN [Suspect]
     Active Substance: BOSENTAN
     Indication: Pulmonary arterial hypertension
     Route: 048
     Dates: start: 20221101
  2. BOSENTAN [Suspect]
     Active Substance: BOSENTAN
     Dosage: TRACLEER WAS INCREASED TO 14 MG TWICE DAILY DOSE
     Route: 048
  3. REMODULIN [Concomitant]
     Active Substance: TREPROSTINIL
     Indication: Pulmonary hypertension
     Dates: start: 20221006
  4. SILDENAFIL [Concomitant]
     Active Substance: SILDENAFIL
  5. TADALAFIL [Concomitant]
     Active Substance: TADALAFIL
     Indication: Pulmonary hypertension
     Dates: start: 20220909

REACTIONS (3)
  - COVID-19 pneumonia [Recovering/Resolving]
  - Diarrhoea [Unknown]
  - Off label use [Unknown]

NARRATIVE: CASE EVENT DATE: 20230105
